FAERS Safety Report 10597503 (Version 1)
Quarter: 2014Q4

REPORT INFORMATION
  Report Type: Spontaneous
  Country: US (occurrence: None)
  Receive Date: 20141120
  Receipt Date: 20141120
  Transmission Date: 20150529
  Serious: Yes (Life-Threatening, Hospitalization, Other)
  Sender: FDA-Public Use
  Company Number: None

PATIENT
  Age: 19 Year
  Sex: Female
  Weight: 48.3 kg

DRUGS (6)
  1. CIPROFLOXACIN. [Concomitant]
     Active Substance: CIPROFLOXACIN
  2. ONDANSETRON [Concomitant]
     Active Substance: ONDANSETRON
  3. GRANISETRON [Suspect]
     Active Substance: GRANISETRON
     Indication: NAUSEA
     Dosage: 1 ONCE ORAL
     Route: 048
     Dates: start: 20141107, end: 20141107
  4. GRANISETRON [Suspect]
     Active Substance: GRANISETRON
     Indication: VOMITING
     Dosage: 1 ONCE ORAL
     Route: 048
     Dates: start: 20141107, end: 20141107
  5. DESVENLAFAXINE. [Concomitant]
     Active Substance: DESVENLAFAXINE
  6. LISDEXAMPHETAMINE [Concomitant]

REACTIONS (5)
  - Malnutrition [None]
  - Vomiting [None]
  - Blood magnesium decreased [None]
  - Electrocardiogram QT prolonged [None]
  - Torsade de pointes [None]

NARRATIVE: CASE EVENT DATE: 20141107
